FAERS Safety Report 21861807 (Version 1)
Quarter: 2023Q1

REPORT INFORMATION
  Report Type: Spontaneous
  Country: US (occurrence: US)
  Receive Date: 20230113
  Receipt Date: 20230113
  Transmission Date: 20230417
  Serious: Yes (Other)
  Sender: FDA-Public Use
  Company Number: US-ALNYLAM PHARMACEUTICALS, INC.-ALN-2023-000109

PATIENT

DRUGS (4)
  1. GIVLAARI [Suspect]
     Active Substance: GIVOSIRAN SODIUM
     Indication: Porphyria acute
     Dosage: WEIGHT BASED, EVERY 28 DAYS
     Route: 058
     Dates: start: 20220324
  2. GIVLAARI [Suspect]
     Active Substance: GIVOSIRAN SODIUM
     Dosage: WEIGHT BASED, EVERY 28 DAYS
     Route: 058
     Dates: start: 20221227
  3. ATIVAN [Concomitant]
     Active Substance: LORAZEPAM
     Indication: Anxiety
     Dosage: UNK, PRN
     Route: 065
  4. ZOFRAN [Concomitant]
     Active Substance: ONDANSETRON HYDROCHLORIDE
     Indication: Product used for unknown indication
     Dosage: UNK, PRN
     Route: 065

REACTIONS (12)
  - Porphyria acute [Unknown]
  - Fatigue [Unknown]
  - Anxiety [Unknown]
  - Muscle spasms [Unknown]
  - Abdominal pain [Unknown]
  - Palpitations [Unknown]
  - Tachycardia [Unknown]
  - Insomnia [Unknown]
  - Nausea [Unknown]
  - Malaise [Unknown]
  - Vomiting [Unknown]
  - Hepatic enzyme increased [Recovered/Resolved]

NARRATIVE: CASE EVENT DATE: 20220401
